FAERS Safety Report 12501387 (Version 1)
Quarter: 2016Q2

REPORT INFORMATION
  Report Type: Report from Study
  Country: US (occurrence: US)
  Receive Date: 20160627
  Receipt Date: 20160627
  Transmission Date: 20160815
  Serious: Yes (Other)
  Sender: FDA-Public Use
  Company Number: US-GILEAD-2016-0219927

PATIENT
  Age: 56 Year
  Sex: Female

DRUGS (1)
  1. LEDIPASVIR/SOFOSBUVIR [Suspect]
     Active Substance: LEDIPASVIR\SOFOSBUVIR
     Indication: HEPATITIS C
     Dosage: 1 DF, UNK
     Route: 048
     Dates: start: 20151019, end: 20160110

REACTIONS (7)
  - Drug ineffective [Unknown]
  - Ascites [Unknown]
  - Hepatitis C [Unknown]
  - Emotional disorder [Unknown]
  - Decreased appetite [Unknown]
  - Depression [Unknown]
  - Alcohol use [Unknown]

NARRATIVE: CASE EVENT DATE: 201603
